FAERS Safety Report 15348626 (Version 1)
Quarter: 2018Q3

REPORT INFORMATION
  Report Type: Report from Study
  Country: US (occurrence: US)
  Receive Date: 20180904
  Receipt Date: 20180904
  Transmission Date: 20181010
  Serious: Yes (Hospitalization)
  Sender: FDA-Public Use
  Company Number: US-ASTELLAS-2018US038556

PATIENT
  Age: 34 Year
  Sex: Female

DRUGS (144)
  1. ISAVUCONAZOLE [Suspect]
     Active Substance: ISAVUCONAZOLE
     Route: 048
     Dates: start: 20180815, end: 20180826
  2. ACYCLOVIR                          /00587301/ [Concomitant]
     Active Substance: ACYCLOVIR
     Indication: PRODUCT USED FOR UNKNOWN INDICATION
     Route: 042
     Dates: start: 20180803, end: 20180806
  3. ALUMINUM MAGNESIUM OXIDE [Concomitant]
     Dosage: 15 ML, OTHER (EVERY 4 HOURS AS NEEDED)
     Route: 048
     Dates: start: 20180802, end: 20180802
  4. CIPROFLOXACIN. [Concomitant]
     Active Substance: CIPROFLOXACIN
     Route: 048
     Dates: start: 20180811, end: 20180812
  5. CYCLOSPORINE. [Concomitant]
     Active Substance: CYCLOSPORINE
     Indication: PRODUCT USED FOR UNKNOWN INDICATION
     Route: 042
     Dates: start: 20180728, end: 20180801
  6. CYCLOSPORINE. [Concomitant]
     Active Substance: CYCLOSPORINE
     Route: 042
     Dates: start: 20180813, end: 20180817
  7. CYCLOSPORINE. [Concomitant]
     Active Substance: CYCLOSPORINE
     Route: 042
     Dates: start: 20180827
  8. DIPHENHYDRAMINE. [Concomitant]
     Active Substance: DIPHENHYDRAMINE
     Indication: PRODUCT USED FOR UNKNOWN INDICATION
     Route: 048
     Dates: start: 20180719, end: 20180808
  9. FUROSEMIDE. [Concomitant]
     Active Substance: FUROSEMIDE
     Dosage: 40 MG, OTHER (ONCE)
     Route: 042
     Dates: start: 20180729, end: 20180729
  10. GRANISETRON [Concomitant]
     Active Substance: GRANISETRON
     Indication: PRODUCT USED FOR UNKNOWN INDICATION
     Dosage: 1 MG, EVERY 12 HOURS (AS NEEDED)
     Route: 042
     Dates: start: 20180717, end: 20180807
  11. HYDROCORTISONE. [Concomitant]
     Active Substance: HYDROCORTISONE
     Dosage: 50 MG, OTHER (ONCE)
     Route: 042
     Dates: start: 20180824, end: 20180824
  12. LORAZEPAM. [Concomitant]
     Active Substance: LORAZEPAM
     Dosage: 0.5 MG, EVERY 6 HOURS
     Route: 042
     Dates: start: 20180728, end: 20180810
  13. MAGNESIUM SULFATE. [Concomitant]
     Active Substance: MAGNESIUM SULFATE
     Dosage: 2 G, OTHER (EVERY 2 HOURS)
     Route: 042
     Dates: start: 20180820, end: 20180820
  14. MAGNESIUM [Concomitant]
     Active Substance: MAGNESIUM
     Route: 048
     Dates: start: 20180816, end: 20180816
  15. MORPHINE SULFATE. [Concomitant]
     Active Substance: MORPHINE SULFATE
     Indication: PRODUCT USED FOR UNKNOWN INDICATION
     Dosage: 100 MG, UNKNOWN FREQ. (CONTINIOUS)
     Route: 042
     Dates: start: 20180730, end: 20180731
  16. MORPHINE SULFATE. [Concomitant]
     Active Substance: MORPHINE SULFATE
     Dosage: 100 MG, UNKNOWN FREQ. (CONTINIOUS)
     Route: 042
     Dates: start: 20180805, end: 20180806
  17. MYCOPHENOLATE MOFETIL. [Concomitant]
     Active Substance: MYCOPHENOLATE MOFETIL
     Route: 042
     Dates: start: 20180827
  18. OLANZAPINE. [Concomitant]
     Active Substance: OLANZAPINE
     Indication: PRODUCT USED FOR UNKNOWN INDICATION
     Route: 048
     Dates: start: 20180729, end: 20180810
  19. POTASSIUM CHLORIDE. [Concomitant]
     Active Substance: POTASSIUM CHLORIDE
     Dosage: 20 MEQ, OTHER (EVERY 2 HOURS)
     Route: 048
     Dates: start: 20180730, end: 20180730
  20. POTASSIUM CHLORIDE. [Concomitant]
     Active Substance: POTASSIUM CHLORIDE
     Dosage: 20 MEQ, OTHER (EVERY 1 HOURS)
     Route: 042
     Dates: start: 20180804, end: 20180804
  21. POTASSIUM CHLORIDE. [Concomitant]
     Active Substance: POTASSIUM CHLORIDE
     Dosage: 40 MEQ, OTHER (ONCE)
     Route: 042
     Dates: start: 20180807, end: 20180807
  22. POTASSIUM CHLORIDE. [Concomitant]
     Active Substance: POTASSIUM CHLORIDE
     Dosage: 20 MEQ, OTHER (ONCE)
     Route: 042
     Dates: start: 20180812, end: 20180812
  23. POTASSIUM CHLORIDE. [Concomitant]
     Active Substance: POTASSIUM CHLORIDE
     Route: 042
     Dates: start: 20180814, end: 20180820
  24. AQUAPHOR                           /01563901/ [Concomitant]
     Indication: PRODUCT USED FOR UNKNOWN INDICATION
     Dosage: 1 APPLICATION, EVERY 12 HOURS
     Route: 061
     Dates: start: 20180819, end: 20180822
  25. ACYCLOVIR                          /00587301/ [Concomitant]
     Active Substance: ACYCLOVIR
     Route: 048
     Dates: start: 20180806, end: 20180826
  26. SIMETHICONE (DIMETHICONE) [Concomitant]
     Active Substance: DIMETHICONE
     Dosage: 15 ML, OTHER (EVERY 4 HOURS AS NEEDED)
     Route: 048
     Dates: start: 20180811, end: 20180811
  27. HYDROMORPHONE [Concomitant]
     Active Substance: HYDROMORPHONE
     Indication: PRODUCT USED FOR UNKNOWN INDICATION
     Dosage: 0.4 MG, OTHER (EVERY 3 HOURS AS NEEDED)
     Route: 042
     Dates: start: 20180729, end: 20180729
  28. CYCLOSPORINE. [Concomitant]
     Active Substance: CYCLOSPORINE
     Route: 042
     Dates: start: 20180817, end: 20180821
  29. FUROSEMIDE. [Concomitant]
     Active Substance: FUROSEMIDE
     Indication: PRODUCT USED FOR UNKNOWN INDICATION
     Dosage: 20 MG, OTHER (ONCE)
     Route: 042
     Dates: start: 20180728, end: 20180728
  30. HYDROCORTISONE. [Concomitant]
     Active Substance: HYDROCORTISONE
     Dosage: 50 MG, EVERY 6 HOURS (AS NEEDED)
     Route: 042
     Dates: start: 20180827
  31. LIDOCAINE VISCOUS [Concomitant]
     Active Substance: LIDOCAINE HYDROCHLORIDE
     Indication: PRODUCT USED FOR UNKNOWN INDICATION
     Dosage: 5 ML, OTHER (EVERY 4 HOURS AS NEEDED) VIA SWISH AND SPIT
     Route: 065
     Dates: start: 20180804, end: 20180804
  32. LORAZEPAM. [Concomitant]
     Active Substance: LORAZEPAM
     Dosage: 1 MG, OTHER (ONCE)
     Route: 042
     Dates: start: 20180826, end: 20180827
  33. MAGNESIUM OXIDE. [Concomitant]
     Active Substance: MAGNESIUM OXIDE
     Indication: PRODUCT USED FOR UNKNOWN INDICATION
     Dosage: 800 MG, OTHER (ONCE)
     Route: 048
     Dates: start: 20180811, end: 20180811
  34. MAGNESIUM SULFATE. [Concomitant]
     Active Substance: MAGNESIUM SULFATE
     Dosage: 2 G, OTHER (ONCE)
     Route: 042
     Dates: start: 20180731, end: 20180731
  35. MAGNESIUM [Concomitant]
     Active Substance: MAGNESIUM
     Indication: PRODUCT USED FOR UNKNOWN INDICATION
     Route: 048
     Dates: start: 20180728, end: 20180731
  36. MAGNESIUM [Concomitant]
     Active Substance: MAGNESIUM
     Dosage: 2 DF, OTHER (ONCE)
     Route: 048
     Dates: start: 20180804, end: 20180804
  37. MORPHINE SULFATE. [Concomitant]
     Active Substance: MORPHINE SULFATE
     Dosage: 100 MG, UNKNOWN FREQ. (CONTINIOUS)
     Route: 042
     Dates: start: 20180801, end: 20180802
  38. POTASSIUM CHLORIDE. [Concomitant]
     Active Substance: POTASSIUM CHLORIDE
     Indication: PRODUCT USED FOR UNKNOWN INDICATION
     Dosage: 20 MEQ, OTHER (ONCE)
     Route: 048
     Dates: start: 20180729, end: 20180729
  39. POTASSIUM CHLORIDE. [Concomitant]
     Active Substance: POTASSIUM CHLORIDE
     Dosage: 40 MEQ, OTHER (ONCE)
     Route: 042
     Dates: start: 20180809, end: 20180809
  40. ISAVUCONAZOLE [Suspect]
     Active Substance: ISAVUCONAZOLE
     Route: 042
     Dates: start: 20180827
  41. CYCLOSPORINE. [Concomitant]
     Active Substance: CYCLOSPORINE
     Route: 042
     Dates: start: 20180809, end: 20180813
  42. DIPHENHYDRAMINE. [Concomitant]
     Active Substance: DIPHENHYDRAMINE
     Dosage: 50 MG, EVERY 6 HOURS (AS NEEDED)
     Route: 042
     Dates: start: 20180821, end: 20180821
  43. DIPHENHYDRAMINE. [Concomitant]
     Active Substance: DIPHENHYDRAMINE
     Route: 042
     Dates: start: 20180827
  44. FILGRASTIM [Concomitant]
     Active Substance: FILGRASTIM
     Indication: PRODUCT USED FOR UNKNOWN INDICATION
     Route: 058
     Dates: start: 20180814, end: 20180821
  45. GRANISETRON [Concomitant]
     Active Substance: GRANISETRON
     Dosage: 1 MG, EVERY 12 HOURS (AS NEEDED)
     Route: 042
     Dates: start: 20180810, end: 20180810
  46. HYDROCORTISONE. [Concomitant]
     Active Substance: HYDROCORTISONE
     Indication: PRODUCT USED FOR UNKNOWN INDICATION
     Dosage: 50 MG, EVERY 6 HOURS (AS NEEDED)
     Route: 042
     Dates: start: 20180802, end: 20180822
  47. HYDROXYPROPYL METHYLCELLULOSE [Concomitant]
     Active Substance: HYPROMELLOSES
     Dosage: 1 DROPS, OTHER (EVERY 4 HOURS BOTH EYES)
     Route: 065
     Dates: start: 20180805, end: 20180805
  48. LORAZEPAM. [Concomitant]
     Active Substance: LORAZEPAM
     Dosage: 0.5 MG, EVERY 12 HOURS (AS NEEDED)
     Route: 042
     Dates: start: 20180729, end: 20180729
  49. MAGNESIUM SULFATE. [Concomitant]
     Active Substance: MAGNESIUM SULFATE
     Dosage: 2 G, OTHER (EVERY 1 HOUR)
     Route: 042
     Dates: start: 20180805, end: 20180805
  50. MAGNESIUM SULFATE. [Concomitant]
     Active Substance: MAGNESIUM SULFATE
     Dosage: 1 G, OTHER (ONCE)
     Route: 042
     Dates: start: 20180808, end: 20180808
  51. MAGNESIUM [Concomitant]
     Active Substance: MAGNESIUM
     Route: 048
     Dates: start: 20180801, end: 20180801
  52. MAGNESIUM [Concomitant]
     Active Substance: MAGNESIUM
     Route: 048
     Dates: start: 20180816, end: 20180818
  53. MORPHINE SULFATE. [Concomitant]
     Active Substance: MORPHINE SULFATE
     Dosage: 100 MG, UNKNOWN FREQ. (CONTINIOUS)
     Route: 042
     Dates: start: 20180731, end: 20180801
  54. MORPHINE SULFATE. [Concomitant]
     Active Substance: MORPHINE SULFATE
     Dosage: 100 MG, UNKNOWN FREQ. (CONTINIOUS)
     Route: 042
     Dates: start: 20180804, end: 20180805
  55. MYCOPHENOLATE MOFETIL. [Concomitant]
     Active Substance: MYCOPHENOLATE MOFETIL
     Indication: PRODUCT USED FOR UNKNOWN INDICATION
     Route: 048
     Dates: start: 20180814, end: 20180826
  56. PANTOPRAZOLE [Concomitant]
     Active Substance: PANTOPRAZOLE
     Route: 042
     Dates: start: 20180827
  57. TRAMADOL. [Concomitant]
     Active Substance: TRAMADOL
     Indication: PRODUCT USED FOR UNKNOWN INDICATION
     Route: 048
     Dates: start: 20180824, end: 20180826
  58. ALBUTEROL                          /00139501/ [Concomitant]
     Active Substance: ALBUTEROL
     Indication: PRODUCT USED FOR UNKNOWN INDICATION
     Dosage: 3 ML, OTHER (ONCE)
     Route: 065
     Dates: start: 20180808, end: 20180808
  59. ALUMINUM MAGNESIUM OXIDE [Concomitant]
     Dosage: 15 ML, OTHER (EVERY 4 HOURS AS NEEDED)
     Route: 048
     Dates: start: 20180811, end: 20180811
  60. CYCLOSPORINE. [Concomitant]
     Active Substance: CYCLOSPORINE
     Route: 042
     Dates: start: 20180824, end: 20180826
  61. DIPHENHYDRAMINE. [Concomitant]
     Active Substance: DIPHENHYDRAMINE
     Dosage: 50 MG, EVERY 6 HOURS (AS NEEDED)
     Route: 042
     Dates: start: 20180812, end: 20180818
  62. ESTRADIOL W/NORETHISTERONE [Concomitant]
     Active Substance: ESTRADIOL\NORETHINDRONE ACETATE
     Dosage: 1 PATCH (0.05 MG/0.14 MG (NF)), TWICE WEEKLY
     Route: 062
     Dates: start: 20180808, end: 20180821
  63. FUROSEMIDE. [Concomitant]
     Active Substance: FUROSEMIDE
     Dosage: 20 MG, OTHER (ONCE)
     Route: 042
     Dates: start: 20180806, end: 20180806
  64. FUROSEMIDE. [Concomitant]
     Active Substance: FUROSEMIDE
     Dosage: 40 MG, OTHER (ONCE)
     Route: 042
     Dates: start: 20180807, end: 20180807
  65. LEVALBUTEROL. [Concomitant]
     Active Substance: LEVALBUTEROL
     Indication: PRODUCT USED FOR UNKNOWN INDICATION
     Dosage: 0.63 MG, EVERY 6 HOURS
     Route: 065
     Dates: start: 20180808, end: 20180808
  66. MAGNESIUM SULFATE. [Concomitant]
     Active Substance: MAGNESIUM SULFATE
     Dosage: 2 G, OTHER (EVERY 1 HOUR)
     Route: 042
     Dates: start: 20180730, end: 20180730
  67. MAGNESIUM SULFATE. [Concomitant]
     Active Substance: MAGNESIUM SULFATE
     Dosage: 1 G, OTHER (EVERY 1 HOUR)
     Route: 042
     Dates: start: 20180801, end: 20180801
  68. MAGNESIUM SULFATE. [Concomitant]
     Active Substance: MAGNESIUM SULFATE
     Dosage: 2 G, OTHER (EVERY 2 HOURS)
     Route: 042
     Dates: start: 20180816, end: 20180816
  69. TRAMADOL HCL [Concomitant]
     Active Substance: TRAMADOL HYDROCHLORIDE
     Route: 048
     Dates: start: 20180811, end: 20180811
  70. ZOLPIDEM [Concomitant]
     Active Substance: ZOLPIDEM\ZOLPIDEM TARTRATE
     Indication: PRODUCT USED FOR UNKNOWN INDICATION
     Dosage: 5 MG, AT BEDTIME (NIGHTLY AS NEEDED)
     Route: 048
     Dates: start: 20180806, end: 20180806
  71. ISAVUCONAZOLE [Suspect]
     Active Substance: ISAVUCONAZOLE
     Route: 042
     Dates: start: 20180729, end: 20180814
  72. ALUMINUM MAGNESIUM OXIDE [Concomitant]
     Indication: PRODUCT USED FOR UNKNOWN INDICATION
     Dosage: 15 ML, OTHER (EVERY 4 HOURS AS NEEDED)
     Route: 048
     Dates: start: 20180731, end: 20180731
  73. MORPHINE SULFATE. [Concomitant]
     Active Substance: MORPHINE SULFATE
     Indication: PRODUCT USED FOR UNKNOWN INDICATION
     Dosage: 2 MG, OTHER (EVERY 3 HOURS AS NEEDED)
     Route: 042
     Dates: start: 20180731, end: 20180731
  74. CIPROFLOXACIN. [Concomitant]
     Active Substance: CIPROFLOXACIN
     Route: 042
     Dates: start: 20180718, end: 20180802
  75. CIPROFLOXACIN. [Concomitant]
     Active Substance: CIPROFLOXACIN
     Route: 042
     Dates: start: 20180803, end: 20180811
  76. ESTRADIOL TRANSDERMAL SYSTEM [Concomitant]
     Active Substance: ESTRADIOL
     Indication: PRODUCT USED FOR UNKNOWN INDICATION
     Dosage: 1 PATCH (0.05 MG/24 HOURS), TWICE WEEKLY
     Route: 062
     Dates: start: 20180824
  77. NORGESTREL [Concomitant]
     Active Substance: NORGESTREL
     Route: 048
     Dates: start: 20180820, end: 20180822
  78. FENTANYL. [Concomitant]
     Active Substance: FENTANYL
     Indication: PRODUCT USED FOR UNKNOWN INDICATION
     Dosage: 1000 ?G, UNKNOWN FREQ. (CONTINUOS)
     Route: 042
     Dates: start: 20180728, end: 20180729
  79. FUROSEMIDE. [Concomitant]
     Active Substance: FUROSEMIDE
     Dosage: 20 MG, OTHER (ONCE)
     Route: 042
     Dates: start: 20180818, end: 20180818
  80. HYDROMORPHONE [Concomitant]
     Active Substance: HYDROMORPHONE
     Indication: PRODUCT USED FOR UNKNOWN INDICATION
     Dosage: 10 MG, UNKNOWN FREQ. (CONTINIOUS)
     Route: 042
     Dates: start: 20180729, end: 20180730
  81. LEVALBUTEROL. [Concomitant]
     Active Substance: LEVALBUTEROL
     Dosage: 0.63 MG, OTHER (ONCE)
     Route: 065
     Dates: start: 20180822, end: 20180822
  82. MAGNESIUM SULFATE. [Concomitant]
     Active Substance: MAGNESIUM SULFATE
     Indication: PRODUCT USED FOR UNKNOWN INDICATION
     Dosage: 1 G, OTHER (ONCE)
     Route: 042
     Dates: start: 20180728, end: 20180728
  83. MAGNESIUM SULFATE. [Concomitant]
     Active Substance: MAGNESIUM SULFATE
     Dosage: 2 G, OTHER (EVERY 1 HOUR)
     Route: 042
     Dates: start: 20180803, end: 20180803
  84. MAGNESIUM SULFATE. [Concomitant]
     Active Substance: MAGNESIUM SULFATE
     Dosage: 1 G, OTHER (ONCE)
     Route: 042
     Dates: start: 20180811, end: 20180811
  85. MAGNESIUM SULFATE. [Concomitant]
     Active Substance: MAGNESIUM SULFATE
     Dosage: 2 G, OTHER (EVERY 2 HOURS)
     Route: 042
     Dates: start: 20180818, end: 20180818
  86. MAGNESIUM [Concomitant]
     Active Substance: MAGNESIUM
     Route: 048
     Dates: start: 20180811, end: 20180811
  87. MAGNESIUM [Concomitant]
     Active Substance: MAGNESIUM
     Dosage: 2 DF, OTHER (ONCE)
     Route: 048
     Dates: start: 20180813, end: 20180813
  88. MORPHINE SULFATE. [Concomitant]
     Active Substance: MORPHINE SULFATE
     Dosage: 100 MG, UNKNOWN FREQ. (CONTINIOUS)
     Route: 042
     Dates: start: 20180802, end: 20180803
  89. ISAVUCONAZOLE [Suspect]
     Active Substance: ISAVUCONAZOLE
     Indication: ANTIFUNGAL PROPHYLAXIS
     Route: 042
     Dates: start: 20180727, end: 20180729
  90. SIMETHICONE (DIMETHICONE) [Concomitant]
     Active Substance: DIMETHICONE
     Dosage: 15 ML, OTHER (EVERY 4 HOURS AS NEEDED)
     Route: 048
     Dates: start: 20180802, end: 20180802
  91. CIPROFLOXACIN. [Concomitant]
     Active Substance: CIPROFLOXACIN
     Indication: PRODUCT USED FOR UNKNOWN INDICATION
     Route: 048
     Dates: start: 20180802, end: 20180803
  92. CYCLOSPORINE. [Concomitant]
     Active Substance: CYCLOSPORINE
     Route: 042
     Dates: start: 20180807, end: 20180809
  93. ESTRADIOL W/NORETHISTERONE [Concomitant]
     Active Substance: ESTRADIOL\NORETHINDRONE ACETATE
     Indication: PRODUCT USED FOR UNKNOWN INDICATION
     Dosage: 1 PATCH (0.05 MG/0.14 MG (NF)), EVERY 3 DAYS
     Route: 062
     Dates: start: 20180720, end: 20180729
  94. NORGESTREL [Concomitant]
     Active Substance: NORGESTREL
     Route: 048
     Dates: start: 20180806, end: 20180808
  95. FOLIC ACID. [Concomitant]
     Active Substance: FOLIC ACID
     Indication: PRODUCT USED FOR UNKNOWN INDICATION
     Route: 042
     Dates: start: 20180803, end: 20180811
  96. HYDROXYPROPYL METHYLCELLULOSE [Concomitant]
     Active Substance: HYPROMELLOSES
     Indication: PRODUCT USED FOR UNKNOWN INDICATION
     Dosage: 1 DROPS, OTHER (EVERY 4 HOURS BOTH EYES)
     Route: 065
     Dates: start: 20180802, end: 20180803
  97. IPRATROPIUM BROMIDE. [Concomitant]
     Active Substance: IPRATROPIUM BROMIDE
     Indication: PRODUCT USED FOR UNKNOWN INDICATION
     Dosage: 2.5 ML, OTHER (ONCE), NEBULIZER
     Route: 065
     Dates: start: 20180808, end: 20180808
  98. LORAZEPAM. [Concomitant]
     Active Substance: LORAZEPAM
     Dosage: 0.5 MG, EVERY 6 HOURS
     Route: 048
     Dates: start: 20180819, end: 20180820
  99. LORAZEPAM. [Concomitant]
     Active Substance: LORAZEPAM
     Dosage: 0.5 MG, OTHER (ONCE)
     Route: 048
     Dates: start: 20180826, end: 20180826
  100. LORAZEPAM. [Concomitant]
     Active Substance: LORAZEPAM
     Dosage: 0.5 MG, OTHER (ONCE)
     Route: 042
     Dates: start: 20180826, end: 20180826
  101. LORAZEPAM. [Concomitant]
     Active Substance: LORAZEPAM
     Dosage: 0.5 MG, EVERY 6 HOURS
     Route: 042
     Dates: start: 20180827
  102. MAGNESIUM SULFATE. [Concomitant]
     Active Substance: MAGNESIUM SULFATE
     Dosage: 2 G, OTHER (ONCE)
     Route: 042
     Dates: start: 20180809, end: 20180809
  103. MEDROXYPROGESTERONE [Concomitant]
     Active Substance: MEDROXYPROGESTERONE
     Indication: PRODUCT USED FOR UNKNOWN INDICATION
     Route: 048
     Dates: start: 20180824
  104. PANTOPRAZOLE [Concomitant]
     Active Substance: PANTOPRAZOLE
     Indication: PRODUCT USED FOR UNKNOWN INDICATION
     Route: 042
     Dates: start: 20180803, end: 20180806
  105. POTASSIUM CHLORIDE. [Concomitant]
     Active Substance: POTASSIUM CHLORIDE
     Dosage: 20 MEQ, OTHER (EVERY 1 HOURS)
     Route: 042
     Dates: start: 20180801, end: 20180801
  106. POTASSIUM CHLORIDE. [Concomitant]
     Active Substance: POTASSIUM CHLORIDE
     Dosage: 20 MEQ, OTHER (EVERY 1 HOURS)
     Route: 042
     Dates: start: 20180805, end: 20180805
  107. SCOPOLAMINE                        /00008701/ [Concomitant]
     Active Substance: SCOPOLAMINE
     Indication: PRODUCT USED FOR UNKNOWN INDICATION
     Dosage: 1 PATCH, EVERY 3 DAYS
     Route: 062
     Dates: start: 20180804, end: 20180815
  108. TRAMADOL HCL [Concomitant]
     Active Substance: TRAMADOL HYDROCHLORIDE
     Indication: PRODUCT USED FOR UNKNOWN INDICATION
     Route: 048
     Dates: start: 20180806, end: 20180806
  109. SIMETHICONE (DIMETHICONE) [Concomitant]
     Active Substance: DIMETHICONE
     Indication: PRODUCT USED FOR UNKNOWN INDICATION
     Dosage: 15 ML, OTHER (EVERY 4 HOURS AS NEEDED)
     Route: 048
     Dates: start: 20180731, end: 20180731
  110. CLOBETASOL [Concomitant]
     Active Substance: CLOBETASOL
     Indication: PRODUCT USED FOR UNKNOWN INDICATION
     Dosage: 1 APPLICATION, EVERY 12 HOURS
     Route: 061
     Dates: start: 20180819, end: 20180822
  111. CYCLOSPORINE. [Concomitant]
     Active Substance: CYCLOSPORINE
     Route: 042
     Dates: start: 20180801, end: 20180803
  112. DIPHENHYDRAMINE. [Concomitant]
     Active Substance: DIPHENHYDRAMINE
     Dosage: 50 MG, EVERY 6 HOURS (AS NEEDED)
     Route: 042
     Dates: start: 20180808, end: 20180811
  113. DIPHENHYDRAMINE. [Concomitant]
     Active Substance: DIPHENHYDRAMINE
     Dosage: 50 MG, OTHER (ONCE)
     Route: 042
     Dates: start: 20180824, end: 20180824
  114. VITAMIN D2 [Concomitant]
     Active Substance: ERGOCALCIFEROL
     Indication: PRODUCT USED FOR UNKNOWN INDICATION
     Dosage: 50000 IU (1.25 MG), ONCE WEEKLY
     Route: 048
     Dates: start: 20180713
  115. NORGESTREL [Concomitant]
     Active Substance: NORGESTREL
     Indication: PRODUCT USED FOR UNKNOWN INDICATION
     Route: 048
     Dates: start: 20180731, end: 20180806
  116. FOLIC ACID. [Concomitant]
     Active Substance: FOLIC ACID
     Route: 048
     Dates: start: 20180812
  117. FUROSEMIDE. [Concomitant]
     Active Substance: FUROSEMIDE
     Dosage: 20 MG, OTHER (ONCE)
     Route: 042
     Dates: start: 20180809, end: 20180809
  118. LEVALBUTEROL. [Concomitant]
     Active Substance: LEVALBUTEROL
     Dosage: 0.63 MG, EVERY 6 HOURS
     Route: 065
     Dates: start: 20180816, end: 20180818
  119. MAGNESIUM SULFATE. [Concomitant]
     Active Substance: MAGNESIUM SULFATE
     Dosage: 1 G, OTHER (EVERY 1 HOUR)
     Route: 042
     Dates: start: 20180728, end: 20180728
  120. MAGNESIUM SULFATE. [Concomitant]
     Active Substance: MAGNESIUM SULFATE
     Dosage: 1 G, OTHER (EVERY 1 HOUR)
     Route: 042
     Dates: start: 20180806, end: 20180806
  121. MAGNESIUM SULFATE. [Concomitant]
     Active Substance: MAGNESIUM SULFATE
     Dosage: 2 G, OTHER (ONCE)
     Route: 042
     Dates: start: 20180814, end: 20180814
  122. MAGNESIUM SULFATE. [Concomitant]
     Active Substance: MAGNESIUM SULFATE
     Dosage: 2 G, OTHER (ONCE)
     Route: 042
     Dates: start: 20180822, end: 20180822
  123. MAGNESIUM [Concomitant]
     Active Substance: MAGNESIUM
     Route: 048
     Dates: start: 20180802, end: 20180803
  124. MAGNESIUM [Concomitant]
     Active Substance: MAGNESIUM
     Route: 048
     Dates: start: 20180812, end: 20180815
  125. MAGNESIUM [Concomitant]
     Active Substance: MAGNESIUM
     Route: 048
     Dates: start: 20180819, end: 20180825
  126. OXYCODONE [Concomitant]
     Active Substance: OXYCODONE
     Indication: PRODUCT USED FOR UNKNOWN INDICATION
     Dosage: 5 MG, OTHER (EVERY 4 HOURS AS NEEDED)
     Route: 048
     Dates: start: 20180811, end: 20180812
  127. POTASSIUM CHLORIDE. [Concomitant]
     Active Substance: POTASSIUM CHLORIDE
     Dosage: 20 MEQ, OTHER (EVERY 1 HOUR)
     Route: 042
     Dates: start: 20180811, end: 20180811
  128. PROCHLORPERAZINE. [Concomitant]
     Active Substance: PROCHLORPERAZINE
     Indication: PRODUCT USED FOR UNKNOWN INDICATION
     Dosage: 10 MG, OTHER (ONCE)
     Route: 042
     Dates: start: 20180804, end: 20180804
  129. ACYCLOVIR                          /00587301/ [Concomitant]
     Active Substance: ACYCLOVIR
     Route: 042
     Dates: start: 20180827
  130. CYCLOSPORINE. [Concomitant]
     Active Substance: CYCLOSPORINE
     Route: 042
     Dates: start: 20180803, end: 20180805
  131. CYCLOSPORINE. [Concomitant]
     Active Substance: CYCLOSPORINE
     Route: 042
     Dates: start: 20180805, end: 20180807
  132. CYCLOSPORINE. [Concomitant]
     Active Substance: CYCLOSPORINE
     Route: 042
     Dates: start: 20180821, end: 20180822
  133. FUROSEMIDE. [Concomitant]
     Active Substance: FUROSEMIDE
     Dosage: 40 MG, OTHER (ONCE)
     Route: 042
     Dates: start: 20180801, end: 20180803
  134. LORAZEPAM. [Concomitant]
     Active Substance: LORAZEPAM
     Indication: PRODUCT USED FOR UNKNOWN INDICATION
     Dosage: 0.5 MG, EVERY 6 HOURS (AS NEEDED)
     Route: 042
     Dates: start: 20180728, end: 20180728
  135. LORAZEPAM. [Concomitant]
     Active Substance: LORAZEPAM
     Dosage: 0.5 MG, EVERY 6 HOURS
     Route: 048
     Dates: start: 20180822, end: 20180822
  136. LORAZEPAM. [Concomitant]
     Active Substance: LORAZEPAM
     Dosage: 0.5 MG, OTHER (ONCE)
     Route: 048
     Dates: start: 20180824, end: 20180826
  137. MAGNESIUM SULFATE. [Concomitant]
     Active Substance: MAGNESIUM SULFATE
     Dosage: 2 G, OTHER (ONCE)
     Route: 042
     Dates: start: 20180811, end: 20180811
  138. MAGNESIUM SULFATE. [Concomitant]
     Active Substance: MAGNESIUM SULFATE
     Dosage: 2 G, OTHER (ONCE)
     Route: 042
     Dates: start: 20180826, end: 20180826
  139. MAGNESIUM [Concomitant]
     Active Substance: MAGNESIUM
     Route: 048
     Dates: start: 20180807, end: 20180810
  140. MORPHINE SULFATE. [Concomitant]
     Active Substance: MORPHINE SULFATE
     Dosage: 100 MG, UNKNOWN FREQ. (CONTINIOUS)
     Route: 042
     Dates: start: 20180803, end: 20180804
  141. PALONOSETRON. [Concomitant]
     Active Substance: PALONOSETRON HYDROCHLORIDE
     Indication: PRODUCT USED FOR UNKNOWN INDICATION
     Dosage: 250 ?G, OTHER (ONCE)
     Route: 042
     Dates: start: 20180804, end: 20180804
  142. PENTAMIDINE [Concomitant]
     Active Substance: PENTAMIDINE
     Indication: PRODUCT USED FOR UNKNOWN INDICATION
     Dosage: 300 MG, EVERY 4 WEEKS (NEBULIZER)
     Route: 065
     Dates: start: 20180822, end: 20180822
  143. POTASSIUM CHLORIDE. [Concomitant]
     Active Substance: POTASSIUM CHLORIDE
     Dosage: 30 MEQ, OTHER (ONCE)
     Route: 042
     Dates: start: 20180811, end: 20180811
  144. TRAMADOL HCL [Concomitant]
     Active Substance: TRAMADOL HYDROCHLORIDE
     Route: 048
     Dates: start: 20180806, end: 20180807

REACTIONS (4)
  - Drug intolerance [Unknown]
  - Nausea [Unknown]
  - Vomiting [Unknown]
  - Diarrhoea [Recovering/Resolving]

NARRATIVE: CASE EVENT DATE: 20180826
